FAERS Safety Report 17876698 (Version 6)
Quarter: 2021Q2

REPORT INFORMATION
  Report Type: Spontaneous
  Country: US (occurrence: US)
  Receive Date: 20200609
  Receipt Date: 20210429
  Transmission Date: 20210717
  Serious: No
  Sender: FDA-Public Use
  Company Number: US-SA-2020SA144313

PATIENT
  Age: 79 Year
  Sex: Female

DRUGS (2)
  1. DUPIXENT [Suspect]
     Active Substance: DUPILUMAB
     Dosage: 300 MG, QOW
     Route: 058
     Dates: start: 2020
  2. DUPIXENT [Suspect]
     Active Substance: DUPILUMAB
     Indication: DERMATITIS ATOPIC
     Dosage: 600 MG, 1X
     Route: 058
     Dates: start: 202004, end: 202004

REACTIONS (8)
  - Flushing [Unknown]
  - Hypersensitivity [Unknown]
  - Product dose omission issue [Unknown]
  - Pyrexia [Unknown]
  - Knee operation [Unknown]
  - Urinary tract infection [Unknown]
  - Illness [Unknown]
  - Sinusitis [Unknown]

NARRATIVE: CASE EVENT DATE: 2020
